FAERS Safety Report 6027294-3 (Version None)
Quarter: 2008Q4

REPORT INFORMATION
  Report Type: 
  Country: None (occurrence: None)
  Receive Date: 20081231
  Receipt Date: 20081231
  Transmission Date: 20090506
  Serious: Yes (Hospitalization)
  Sender: FDA-Public Use
  Company Number: None

PATIENT
  Age: 64 Year
  Sex: Male
  Weight: 92.5338 kg

DRUGS (1)
  1. LEVAQUIN [Suspect]
     Dosage: 1 TABLET DAILY PO
     Route: 048
     Dates: start: 20081215, end: 20081216

REACTIONS (6)
  - BLOOD CHOLESTEROL INCREASED [None]
  - CEREBROVASCULAR ACCIDENT [None]
  - DIPLOPIA [None]
  - HYPERTENSION [None]
  - MALAISE [None]
  - VERTIGO [None]
